FAERS Safety Report 4607530-8 (Version None)
Quarter: 2005Q1

REPORT INFORMATION
  Report Type: 
  Country: None (occurrence: None)
  Receive Date: 20050309
  Receipt Date: 20050222
  Transmission Date: 20050727
  Serious: Yes (Hospitalization)
  Sender: FDA-Public Use
  Company Number: MK200502-0208-1

PATIENT
  Age: 43 Year
  Sex: Male

DRUGS (3)
  1. METHADOSE [Suspect]
  2. ANTI-VIRALS, [Concomitant]
  3. CEFTRIAXON AND FLUCONAZOLE [Concomitant]

REACTIONS (32)
  - AORTIC ATHEROSCLEROSIS [None]
  - COAGULOPATHY [None]
  - DILATATION ATRIAL [None]
  - ELECTROCARDIOGRAM QT CORRECTED INTERVAL PROLONGED [None]
  - ELECTROLYTE IMBALANCE [None]
  - GASTRIC VARICES HAEMORRHAGE [None]
  - GENERAL PHYSICAL HEALTH DETERIORATION [None]
  - HAEMATEMESIS [None]
  - HAEMODYNAMIC INSTABILITY [None]
  - HEPATIC CIRRHOSIS [None]
  - HYPERBILIRUBINAEMIA [None]
  - HYPERCREATININAEMIA [None]
  - HYPERTENSIVE CARDIOMYOPATHY [None]
  - HYPERURICAEMIA [None]
  - HYPOALBUMINAEMIA [None]
  - HYPOCALCAEMIA [None]
  - HYPOCHOLESTEROLAEMIA [None]
  - HYPOGLYCAEMIA [None]
  - HYPOMAGNESAEMIA [None]
  - LABORATORY TEST ABNORMAL [None]
  - LOSS OF CONSCIOUSNESS [None]
  - MELAENA [None]
  - MITRAL VALVE INCOMPETENCE [None]
  - PANCYTOPENIA [None]
  - PERICARDIAL EFFUSION [None]
  - PYREXIA [None]
  - SINUS BRADYCARDIA [None]
  - TORSADE DE POINTES [None]
  - VENTRICULAR ARRHYTHMIA [None]
  - VENTRICULAR EXTRASYSTOLES [None]
  - VENTRICULAR TACHYCARDIA [None]
  - VERTIGO [None]
